FAERS Safety Report 23032663 (Version 1)
Quarter: 2023Q4

REPORT INFORMATION
  Report Type: Spontaneous
  Country: SE (occurrence: SE)
  Receive Date: 20231005
  Receipt Date: 20231005
  Transmission Date: 20240110
  Serious: Yes (Death, Hospitalization)
  Sender: FDA-Public Use
  Company Number: SE-ASTELLAS-2023US029410

PATIENT
  Age: 85 Year
  Sex: Male

DRUGS (3)
  1. PADCEV [Suspect]
     Active Substance: ENFORTUMAB VEDOTIN-EJFV
     Indication: Neoplasm malignant
     Dosage: UNK UNK, CYCLIC (DAY 1)
     Route: 065
     Dates: start: 20230704
  2. PADCEV [Suspect]
     Active Substance: ENFORTUMAB VEDOTIN-EJFV
     Dosage: UNK UNK, CYCLIC (DAY 8)
     Route: 065
  3. PADCEV [Suspect]
     Active Substance: ENFORTUMAB VEDOTIN-EJFV
     Dosage: UNK UNK, CYCLIC (DAY 15)
     Route: 065

REACTIONS (4)
  - COVID-19 [Fatal]
  - Pathological fracture [Unknown]
  - Fall [Unknown]
  - Infection [Unknown]
